FAERS Safety Report 5211223-6 (Version None)
Quarter: 2006Q4

REPORT INFORMATION
  Report Type: 
  Country: None (occurrence: None)
  Receive Date: 20061130
  Receipt Date: 20060724
  Transmission Date: 20070319
  Serious: Yes (Other)
  Sender: FDA-Public Use
  Company Number: WAES 0509USA01767

PATIENT
  Age: 66 Year
  Sex: Female

DRUGS (2)
  1. FOSAMAX [Suspect]
     Dosage: 10 MG/DAILY/PO; 70 MG/WKY/PO
     Route: 048
     Dates: start: 19950101, end: 20040301
  2. FOSAMAX [Suspect]
     Dosage: 10 MG/DAILY/PO; 70 MG/WKY/PO
     Route: 048
     Dates: start: 20040301, end: 20050719

REACTIONS (2)
  - DENTAL FISTULA [None]
  - OSTEONECROSIS [None]
